FAERS Safety Report 9465708 (Version 1)
Quarter: 2013Q3

REPORT INFORMATION
  Report Type: Report from Study
  Country: US (occurrence: US)
  Receive Date: 20130820
  Receipt Date: 20130820
  Transmission Date: 20140515
  Serious: Yes (Hospitalization)
  Sender: FDA-Public Use
  Company Number: US-JNJFOC-20130806519

PATIENT
  Sex: 0

DRUGS (1)
  1. REMICADE [Suspect]
     Indication: COLITIS ULCERATIVE
     Dosage: FROM 2 YEARS AGO (FROM TIME OF THE REPORT)
     Route: 042

REACTIONS (2)
  - Pulmonary mass [Not Recovered/Not Resolved]
  - Arthropathy [Not Recovered/Not Resolved]
